FAERS Safety Report 10345632 (Version 1)
Quarter: 2014Q3

REPORT INFORMATION
  Report Type: Spontaneous
  Country: US (occurrence: US)
  Receive Date: 20140728
  Receipt Date: 20140728
  Transmission Date: 20150326
  Serious: No
  Sender: FDA-Public Use
  Company Number: US-009507513-1406USA002037

PATIENT
  Sex: Male

DRUGS (5)
  1. CLARITIN [Suspect]
     Active Substance: LORATADINE
     Indication: RHINORRHOEA
  2. CLARITIN [Suspect]
     Active Substance: LORATADINE
     Indication: EYE PRURITUS
  3. CLARITIN [Suspect]
     Active Substance: LORATADINE
     Indication: FEELING ABNORMAL
  4. CLARITIN [Suspect]
     Active Substance: LORATADINE
     Indication: SEASONAL ALLERGY
     Dosage: UNK, UNKNOWN
     Route: 048
  5. CLARITIN [Suspect]
     Active Substance: LORATADINE
     Indication: SINUS HEADACHE

REACTIONS (2)
  - Therapeutic response changed [Unknown]
  - Drug effect decreased [Unknown]
